FAERS Safety Report 10003937 (Version 2)
Quarter: 2014Q2

REPORT INFORMATION
  Report Type: Spontaneous
  Country: US (occurrence: US)
  Receive Date: 20140312
  Receipt Date: 20140611
  Transmission Date: 20141212
  Serious: No
  Sender: FDA-Public Use
  Company Number: US-INCYTE CORPORATION-2014IN000145

PATIENT
  Age: 69 Year
  Sex: Male
  Weight: 73.02 kg

DRUGS (1)
  1. JAKAFI [Suspect]
     Indication: MYELOFIBROSIS
     Dosage: 25 MG, BID
     Route: 048
     Dates: start: 20140111

REACTIONS (3)
  - Nasopharyngitis [Unknown]
  - Productive cough [Unknown]
  - Chronic sinusitis [Recovering/Resolving]
